FAERS Safety Report 5903353-8 (Version None)
Quarter: 2008Q3

REPORT INFORMATION
  Report Type: 
  Country: None (occurrence: None)
  Receive Date: 20080926
  Receipt Date: 20080915
  Transmission Date: 20090109
  Serious: Yes (Life-Threatening, Hospitalization)
  Sender: FDA-Public Use
  Company Number: OMPQ-NO-0809S-0782

PATIENT
  Age: 66 Year
  Sex: Male

DRUGS (3)
  1. OMNIPAQUE 140 [Suspect]
     Indication: METASTASIS
     Dosage: 105 ML, SINGLE DOSE, I.V.
     Route: 042
     Dates: start: 20080904, end: 20080904
  2. OMNIPAQUE 140 [Suspect]
  3. CYTOSTATIC AGENTS (DEGRAMONT PROTOCOL) [Concomitant]

REACTIONS (2)
  - ANAPHYLACTOID SHOCK [None]
  - RESPIRATORY ARREST [None]
